FAERS Safety Report 18898277 (Version 1)
Quarter: 2021Q1

REPORT INFORMATION
  Report Type: Spontaneous
  Country: GB (occurrence: GB)
  Receive Date: 20210216
  Receipt Date: 20210216
  Transmission Date: 20210420
  Serious: Yes (Other)
  Sender: FDA-Public Use
  Company Number: GB-GLAXOSMITHKLINE-GB2021040992

PATIENT
  Age: 54 Year
  Sex: Male

DRUGS (1)
  1. FLUTICASONE PROPIONATE. [Suspect]
     Active Substance: FLUTICASONE PROPIONATE
     Indication: ACUTE SINUSITIS
     Dosage: UNK (NASAL SPRAY PRN)
     Route: 045
     Dates: start: 20190101, end: 20210101

REACTIONS (2)
  - Cushing^s syndrome [Unknown]
  - Medication error [Unknown]
